FAERS Safety Report 9054619 (Version 1)
Quarter: 2013Q1

REPORT INFORMATION
  Report Type: Spontaneous
  Country: PT (occurrence: PT)
  Receive Date: 20130208
  Receipt Date: 20130208
  Transmission Date: 20140127
  Serious: Yes (Hospitalization)
  Sender: FDA-Public Use
  Company Number: PT-B.I. PHARMACEUTICALS,INC./RIDGEFIELD-2013-BI-03000PO

PATIENT
  Age: 80 Year
  Sex: Female

DRUGS (1)
  1. PRADAXA [Suspect]
     Indication: ATRIAL FIBRILLATION
     Dosage: 220 MG
     Dates: start: 201203

REACTIONS (5)
  - Haemorrhage [Recovered/Resolved]
  - Infection [Recovered/Resolved]
  - Appendicitis [Recovered/Resolved]
  - Peritonitis [Recovered/Resolved]
  - Renal failure [Not Recovered/Not Resolved]
